FAERS Safety Report 23111942 (Version 1)
Quarter: 2023Q4

REPORT INFORMATION
  Report Type: Report from Study
  Country: US (occurrence: US)
  Receive Date: 20231026
  Receipt Date: 20231026
  Transmission Date: 20240110
  Serious: Yes (Other)
  Sender: FDA-Public Use
  Company Number: US-PFIZER INC-202300347225

PATIENT
  Age: 68 Year
  Sex: Female

DRUGS (1)
  1. VYNDAMAX [Suspect]
     Active Substance: TAFAMIDIS
     Dosage: 61MG TAKE 1 CAPSULE ONCE DAILY
     Route: 048

REACTIONS (2)
  - Dialysis [Unknown]
  - Pruritus [Unknown]
